FAERS Safety Report 24226229 (Version 1)
Quarter: 2024Q3

REPORT INFORMATION
  Report Type: Report from Study
  Country: CO (occurrence: CO)
  Receive Date: 20240820
  Receipt Date: 20240820
  Transmission Date: 20241017
  Serious: Yes (Hospitalization, Other)
  Sender: BIOVITRUM
  Company Number: CO-AstraZeneca-2022A352748

PATIENT
  Age: 6 Week
  Sex: Male
  Weight: 6.8 kg

DRUGS (1)
  1. SYNAGIS [Suspect]
     Active Substance: PALIVIZUMAB
     Indication: Respiratory disorder prophylaxis
     Dosage: 15 MG/KG MONTHLY
     Route: 030
     Dates: start: 20220618

REACTIONS (6)
  - Inguinal hernia [Recovering/Resolving]
  - Bowel movement irregularity [Recovering/Resolving]
  - Pneumonia [Recovered/Resolved]
  - Aspiration [Recovered/Resolved]
  - Apnoea [Recovered/Resolved]
  - Dyspnoea [Recovering/Resolving]

NARRATIVE: CASE EVENT DATE: 20220722
